FAERS Safety Report 6619222-4 (Version None)
Quarter: 2010Q1

REPORT INFORMATION
  Report Type: 
  Country: None (occurrence: None)
  Receive Date: 20100302
  Receipt Date: 20100222
  Transmission Date: 20100710
  Serious: Yes (Hospitalization)
  Sender: FDA-Public Use
  Company Number: DSA_42460_2010

PATIENT
  Sex: Male
  Weight: 52.6173 kg

DRUGS (13)
  1. XENAZINE [Suspect]
     Indication: CEREBRAL PALSY
     Dosage: (DF ORAL),  (25 MG TID ORAL), (12.5 MG BID ORAL) , (12.5 MG TID ORAL)
     Route: 048
     Dates: start: 20070101
  2. XENAZINE [Suspect]
     Indication: CHOREOATHETOSIS
     Dosage: (DF ORAL),  (25 MG TID ORAL), (12.5 MG BID ORAL) , (12.5 MG TID ORAL)
     Route: 048
     Dates: start: 20070101
  3. XENAZINE [Suspect]
     Indication: QUADRIPLEGIA
     Dosage: (DF ORAL),  (25 MG TID ORAL), (12.5 MG BID ORAL) , (12.5 MG TID ORAL)
     Route: 048
     Dates: start: 20070101
  4. RISPERDAL [Concomitant]
  5. ARICEPT [Concomitant]
  6. CLONAZEPAM [Concomitant]
  7. ATIVAN [Concomitant]
  8. FOSAMAX [Concomitant]
  9. VITAMIN D [Concomitant]
  10. TUMS E-X [Concomitant]
  11. SALINE /00075401/ [Concomitant]
  12. ADVIL LIQUI-GELS [Concomitant]
  13. MULTIPLE VITAMINS [Concomitant]

REACTIONS (10)
  - BLOOD ALBUMIN DECREASED [None]
  - BLOOD UREA INCREASED [None]
  - BURSITIS [None]
  - CELLULITIS STAPHYLOCOCCAL [None]
  - CELLULITIS STREPTOCOCCAL [None]
  - DEPRESSION [None]
  - JOINT SWELLING [None]
  - LETHARGY [None]
  - PNEUMONIA ASPIRATION [None]
  - SEPSIS SYNDROME [None]
